FAERS Safety Report 8764927 (Version 1)
Quarter: 2012Q4

REPORT INFORMATION
  Report Type: 
  Country: AU (occurrence: AU)
  Receive Date: 20120902
  Receipt Date: 20120902
  Transmission Date: 20130627
  Serious: Yes (Other)
  Sender: FDA-Public Use
  Company Number: AU-MYLANLABS-2012S1017305

PATIENT
  Age: 75 Year
  Sex: Female

DRUGS (5)
  1. TRAMADOL [Suspect]
     Route: 065
  2. MOMETASONE [Concomitant]
     Route: 065
  3. ERGOCALCIFEROL [Concomitant]
     Route: 065
  4. AMLODIPINE [Concomitant]
     Route: 065
  5. ESTRADIOL [Concomitant]
     Route: 065

REACTIONS (3)
  - Tachycardia [Recovered/Resolved]
  - Atrial fibrillation [Recovered/Resolved]
  - Hypokalaemia [Recovered/Resolved]
